FAERS Safety Report 4959218-1 (Version None)
Quarter: 2006Q1

REPORT INFORMATION
  Report Type: 
  Country: None (occurrence: None)
  Receive Date: 20060331
  Receipt Date: 20060320
  Transmission Date: 20060701
  Serious: Yes (Other)
  Sender: FDA-Public Use
  Company Number: DE-AMGEN-UK173149

PATIENT
  Sex: Female

DRUGS (1)
  1. NEUPOGEN [Suspect]
     Indication: NEUTROPENIA
     Route: 058
     Dates: start: 19980101, end: 20020101

REACTIONS (7)
  - AMNIORRHEXIS [None]
  - DRUG EXPOSURE DURING PREGNANCY [None]
  - LABOUR PAIN [None]
  - LEUKOPENIA [None]
  - PREGNANCY [None]
  - PREMATURE LABOUR [None]
  - RENAL DISORDER IN PREGNANCY [None]
